FAERS Safety Report 9929968 (Version 1)
Quarter: 2014Q1

REPORT INFORMATION
  Report Type: Report from Study
  Country: IT (occurrence: IT)
  Receive Date: 20140227
  Receipt Date: 20140227
  Transmission Date: 20141002
  Serious: Yes (Hospitalization, Other)
  Sender: FDA-Public Use
  Company Number: PHHO2014IT002875

PATIENT
  Age: 5 Year
  Sex: Male
  Weight: 21.5 kg

DRUGS (1)
  1. SOMATROPIN [Suspect]
     Indication: PRADER-WILLI SYNDROME
     Dosage: 1 MG,
     Route: 058
     Dates: start: 20130625

REACTIONS (6)
  - Interstitial lung disease [Recovered/Resolved]
  - Atelectasis [Recovered/Resolved]
  - Respiratory distress [Unknown]
  - Upper respiratory tract infection [Unknown]
  - Tachypnoea [Unknown]
  - Crepitations [Unknown]
